FAERS Safety Report 9983435 (Version 1)
Quarter: 2014Q1

REPORT INFORMATION
  Report Type: Spontaneous
  Country: US (occurrence: US)
  Receive Date: 20140307
  Receipt Date: 20140307
  Transmission Date: 20141002
  Serious: No
  Sender: FDA-Public Use
  Company Number: US-BAYER-2014-035417

PATIENT
  Age: 60 Year
  Sex: Female

DRUGS (2)
  1. ALEVE CAPLET [Suspect]
     Indication: ARTHRITIS
     Dosage: 1 DF, PRN
     Route: 048
     Dates: start: 20140224, end: 20140305
  2. SYNTHROID [Concomitant]

REACTIONS (2)
  - Dyspepsia [Recovered/Resolved]
  - Dyspepsia [Not Recovered/Not Resolved]
